FAERS Safety Report 9585823 (Version 1)
Quarter: 2013Q4

REPORT INFORMATION
  Report Type: Spontaneous
  Country: None (occurrence: None)
  Receive Date: 20131001
  Receipt Date: 20131001
  Transmission Date: 20140711
  Serious: Yes (Other)
  Sender: FDA-Public Use
  Company Number: GER/UKI/13/0034668

PATIENT
  Age: 46 Year
  Sex: Female

DRUGS (1)
  1. OLANZAPINE (OLANZAPINE) [Suspect]
     Indication: BIPOLAR DISORDER
     Dosage: 10 MG, 1 IN 1 D, ORAL
     Route: 048

REACTIONS (4)
  - Weight increased [None]
  - Increased appetite [None]
  - Hunger [None]
  - Suicidal behaviour [None]
